FAERS Safety Report 9705806 (Version 2)
Quarter: 2013Q4

REPORT INFORMATION
  Report Type: Spontaneous
  Country: US (occurrence: US)
  Receive Date: 20131122
  Receipt Date: 20131122
  Transmission Date: 20140711
  Serious: No
  Sender: FDA-Public Use
  Company Number: US-GILEAD-2008-0017185

PATIENT
  Age: 60 Year
  Sex: Female
  Weight: 117.3 kg

DRUGS (1)
  1. LETAIRIS [Suspect]
     Indication: PULMONARY ARTERIAL HYPERTENSION
     Dates: start: 20080703, end: 20080716

REACTIONS (2)
  - Dyspnoea [None]
  - Oedema peripheral [None]
